FAERS Safety Report 7825019-X (Version None)
Quarter: 2011Q4

REPORT INFORMATION
  Report Type: 
  Country: None (occurrence: None)
  Receive Date: 20111019
  Receipt Date: 20110426
  Transmission Date: 20120403
  Serious: No
  Sender: FDA-Public Use
  Company Number: US-BRISTOL-MYERS SQUIBB COMPANY-15640485

PATIENT
  Sex: Female

DRUGS (3)
  1. BYSTOLIC [Concomitant]
     Indication: BLOOD PRESSURE
  2. AVALIDE [Suspect]
     Indication: HYPERTENSION
     Dosage: TAKING FOR YEARS.1DF=300MG + 25MG
  3. NORVASC [Concomitant]
     Indication: BLOOD PRESSURE

REACTIONS (1)
  - DRUG INEFFECTIVE [None]
